FAERS Safety Report 7577172-3 (Version None)
Quarter: 2011Q2

REPORT INFORMATION
  Report Type: 
  Country: None (occurrence: None)
  Receive Date: 20110628
  Receipt Date: 20110621
  Transmission Date: 20111010
  Serious: No
  Sender: FDA-Public Use
  Company Number: US-PFIZER INC-2011137197

PATIENT
  Sex: Male

DRUGS (3)
  1. IBUPROFEN [Concomitant]
     Dosage: 200 MG, UNK
  2. LEVOTHYROXINE [Concomitant]
     Dosage: 100 UG, UNK
  3. SUTENT [Suspect]
     Dosage: 50 MG, 1X/DAY, FOR 4 WEEKS EVERY 6 WEEKS
     Route: 048

REACTIONS (2)
  - FATIGUE [None]
  - DIARRHOEA [None]
